FAERS Safety Report 7860243-1 (Version None)
Quarter: 2011Q4

REPORT INFORMATION
  Report Type: 
  Country: None (occurrence: None)
  Receive Date: 20111027
  Receipt Date: 20111024
  Transmission Date: 20120403
  Serious: Yes (Other)
  Sender: FDA-Public Use
  Company Number: AU-ROCHE-794657

PATIENT
  Sex: Female
  Weight: 84 kg

DRUGS (13)
  1. KLIOVANCE [Concomitant]
  2. NEXIUM [Concomitant]
  3. SALAZOPYNIN [Concomitant]
  4. CELEBREX [Concomitant]
  5. ACTEMRA [Suspect]
     Dosage: DOSE: 400MG/20 ML
  6. ACTEMRA [Suspect]
     Dosage: DOSE: 80 MG/4ML
  7. ACTEMRA [Suspect]
     Indication: RHEUMATOID ARTHRITIS
     Route: 042
     Dates: start: 20110309, end: 20110803
  8. ACULAR [Concomitant]
  9. CALCIUM CARBONATE [Concomitant]
  10. CAPADEX [Concomitant]
  11. ACTEMRA [Suspect]
     Dosage: DOSE: 200 MG/10 ML
  12. MONOPLUS [Concomitant]
  13. PREDNISONE [Concomitant]

REACTIONS (3)
  - COUGH [None]
  - DYSPNOEA [None]
  - WHEEZING [None]
